FAERS Safety Report 6883224-3 (Version None)
Quarter: 2010Q3

REPORT INFORMATION
  Report Type: 
  Country: None (occurrence: None)
  Receive Date: 20100727
  Receipt Date: 20090517
  Transmission Date: 20110219
  Serious: No
  Sender: FDA-Public Use
  Company Number: US-PFIZER INC-2005154653

PATIENT
  Sex: Male
  Weight: 104 kg

DRUGS (10)
  1. CELEBREX [Suspect]
     Indication: ARTHRITIS
     Dosage: UNK
     Route: 065
     Dates: end: 20050101
  2. VIAGRA [Interacting]
     Indication: ERECTILE DYSFUNCTION
     Route: 048
  3. TRAMADOL HCL [Interacting]
     Dosage: UNK
     Route: 065
  4. TAMSULOSIN HCL [Interacting]
     Indication: ILL-DEFINED DISORDER
     Dosage: UNK
     Route: 065
  5. ACETYLSALICYLIC ACID SRT [Concomitant]
     Route: 065
  6. GABAPENTIN [Concomitant]
     Route: 065
  7. HYDROCHLOROTHIAZIDE [Concomitant]
     Route: 065
  8. LISINOPRIL [Concomitant]
     Route: 065
  9. FISH OIL [Concomitant]
     Route: 065
  10. GLUCOSAMINE [Concomitant]
     Route: 065

REACTIONS (7)
  - BODY HEIGHT DECREASED [None]
  - DRUG INEFFECTIVE [None]
  - DRUG INTERACTION [None]
  - ERECTILE DYSFUNCTION [None]
  - ERECTION INCREASED [None]
  - FATIGUE [None]
  - MALE ORGASMIC DISORDER [None]
